FAERS Safety Report 23643611 (Version 1)
Quarter: 2024Q1

REPORT INFORMATION
  Report Type: Spontaneous
  Country: US (occurrence: US)
  Receive Date: 20240318
  Receipt Date: 20240318
  Transmission Date: 20240410
  Serious: Yes (Death, Life-Threatening, Hospitalization, Other)
  Sender: FDA-Public Use
  Company Number: US-SANDOZ-SDZ2024US028146

PATIENT
  Age: 65 Year
  Sex: Female

DRUGS (1)
  1. METHOTREXATE [Suspect]
     Active Substance: METHOTREXATE
     Indication: Central nervous system lymphoma
     Dosage: UNK
     Route: 065

REACTIONS (7)
  - Acute respiratory distress syndrome [Unknown]
  - Shock [Unknown]
  - Haemoptysis [Unknown]
  - Acute kidney injury [Recovering/Resolving]
  - Ulcer haemorrhage [Unknown]
  - Pancytopenia [Not Recovered/Not Resolved]
  - Toxicity to various agents [Fatal]
